FAERS Safety Report 9265524 (Version 1)
Quarter: 2013Q2

REPORT INFORMATION
  Report Type: Spontaneous
  Country: US (occurrence: US)
  Receive Date: 20130501
  Receipt Date: 20130501
  Transmission Date: 20140414
  Serious: Yes (Other)
  Sender: FDA-Public Use
  Company Number: PHEH2013US009570

PATIENT
  Sex: Female

DRUGS (12)
  1. DIOVAN [Suspect]
     Dosage: 320MG PER DAY
     Route: 048
  2. LANTUS [Concomitant]
     Dosage: 30 U PER DAY
  3. APIDRA [Concomitant]
     Dosage: UNK UKN, PRN
  4. HYDROCHLOROTHIAZIDE [Concomitant]
     Dosage: 25 MG, UNK
  5. ZETIA [Concomitant]
     Dosage: 10 MG A DAY
  6. CILOSTAZOL [Concomitant]
     Dosage: 100 MG, BID
  7. PANTOPRAZOLE [Concomitant]
     Dosage: 40 MG A DAY
  8. TRAVATAN [Concomitant]
     Dosage: 1 DF A DAY
  9. ECOTRIN [Concomitant]
     Dosage: 81 MG, UNK
  10. VITAMIN D [Concomitant]
     Dosage: 2000 MG A DAY
  11. CENTRUM SILVER [Concomitant]
     Dosage: UNK UKN, UNK
  12. ECHINACEA [Concomitant]
     Dosage: 2 DF A DAY

REACTIONS (2)
  - Benign neoplasm of thyroid gland [Unknown]
  - Thyroid mass [Unknown]
